FAERS Safety Report 26041452 (Version 1)
Quarter: 2025Q4

REPORT INFORMATION
  Report Type: Spontaneous
  Country: US (occurrence: US)
  Receive Date: 20251113
  Receipt Date: 20251113
  Transmission Date: 20260118
  Serious: Yes (Hospitalization, Other)
  Sender: Kenvue
  Company Number: US-KENVUE-20251103309

PATIENT
  Age: 15 Year
  Sex: Female

DRUGS (1)
  1. DIPHENHYDRAMINE HYDROCHLORIDE [Suspect]
     Active Substance: DIPHENHYDRAMINE HYDROCHLORIDE
     Indication: Product used for unknown indication
     Dosage: 250 DOSAGE FORM
     Route: 065

REACTIONS (7)
  - Electrocardiogram QT prolonged [Unknown]
  - Mydriasis [Unknown]
  - Mucosal dryness [Unknown]
  - Overdose [Unknown]
  - Agitation [Unknown]
  - Heart rate increased [Unknown]
  - Blood pressure increased [Unknown]
